FAERS Safety Report 17986794 (Version 2)
Quarter: 2020Q3

REPORT INFORMATION
  Report Type: Spontaneous
  Country: JP (occurrence: JP)
  Receive Date: 20200707
  Receipt Date: 20200903
  Transmission Date: 20201103
  Serious: Yes (Other)
  Sender: FDA-Public Use
  Company Number: JP-ROCHE-2635180

PATIENT
  Age: 56 Year
  Sex: Male

DRUGS (2)
  1. LUCENTIS [Suspect]
     Active Substance: RANIBIZUMAB
     Indication: RETINAL VEIN OCCLUSION
     Route: 031
     Dates: start: 20200617
  2. LUCENTIS [Suspect]
     Active Substance: RANIBIZUMAB
     Indication: AGE-RELATED MACULAR DEGENERATION
     Route: 031
     Dates: start: 20200603

REACTIONS (12)
  - Retinal exudates [Unknown]
  - Retinal oedema [Unknown]
  - Serous retinal detachment [Unknown]
  - Visual acuity reduced [Unknown]
  - Retinal haemorrhage [Unknown]
  - Non-infectious endophthalmitis [Not Recovered/Not Resolved]
  - Retinal vein occlusion [Unknown]
  - Retinal vascular occlusion [Not Recovered/Not Resolved]
  - Disease progression [Unknown]
  - Iris adhesions [Unknown]
  - Ocular hyperaemia [Unknown]
  - Eye inflammation [Unknown]

NARRATIVE: CASE EVENT DATE: 20200622
